FAERS Safety Report 5201397-5 (Version None)
Quarter: 2007Q1

REPORT INFORMATION
  Report Type: 
  Country: None (occurrence: None)
  Receive Date: 20070108
  Receipt Date: 20061229
  Transmission Date: 20070707
  Serious: Yes (Hospitalization)
  Sender: FDA-Public Use
  Company Number: US-PURDUE-USA_2006_0026062

PATIENT
  Sex: Male

DRUGS (3)
  1. OXYCONTIN [Suspect]
     Indication: NECK PAIN
     Dosage: 160 MG, Q8H
     Route: 065
  2. PERCOCET [Suspect]
     Indication: NECK PAIN
  3. FENTANYL TRANSDERMAL SYSTEM [Concomitant]
     Indication: NECK PAIN
     Route: 048

REACTIONS (3)
  - ASPARTATE AMINOTRANSFERASE INCREASED [None]
  - HEPATIC ENZYME ABNORMAL [None]
  - JAUNDICE [None]
